FAERS Safety Report 19160746 (Version 1)
Quarter: 2021Q2

REPORT INFORMATION
  Report Type: Spontaneous
  Country: US (occurrence: US)
  Receive Date: 20210420
  Receipt Date: 20210420
  Transmission Date: 20210717
  Serious: No
  Sender: FDA-Public Use
  Company Number: US-PURDUE-USA-2020-0153478

PATIENT
  Sex: Male

DRUGS (1)
  1. HYDROCODONE BITARTRATE/ACETAMINOPHEN [Suspect]
     Active Substance: ACETAMINOPHEN\HYDROCODONE BITARTRATE
     Indication: INTERVERTEBRAL DISC DEGENERATION
     Dosage: (10/325) 1 UNK, Q12H
     Route: 065
     Dates: start: 201204, end: 201706

REACTIONS (2)
  - Confusional state [Unknown]
  - Memory impairment [Unknown]
